FAERS Safety Report 7460527-5 (Version None)
Quarter: 2011Q2

REPORT INFORMATION
  Report Type: 
  Country: None (occurrence: None)
  Receive Date: 20110505
  Receipt Date: 20110331
  Transmission Date: 20111010
  Serious: Yes (Other)
  Sender: FDA-Public Use
  Company Number: PHHY2011AU25907

PATIENT
  Age: 25 Year
  Sex: Male

DRUGS (2)
  1. VOXAM [Suspect]
     Dosage: 100 MG, UNK
     Route: 048
  2. VOXAM [Suspect]
     Dosage: 50 MG, ONE MONTH
     Route: 048

REACTIONS (2)
  - EJACULATION FAILURE [None]
  - FEELING ABNORMAL [None]
